FAERS Safety Report 5564825-1 (Version None)
Quarter: 2007Q4

REPORT INFORMATION
  Report Type: 
  Country: None (occurrence: None)
  Receive Date: 20071218
  Receipt Date: 20071210
  Transmission Date: 20080405
  Serious: Yes (Disabling)
  Sender: FDA-Public Use
  Company Number: B0498402A

PATIENT
  Age: 57 Year
  Sex: Male

DRUGS (2)
  1. NIQUITIN CQ 21MG [Suspect]
     Route: 062
  2. LEVOTHYROXINE SODIUM [Concomitant]
     Dates: start: 20041007

REACTIONS (1)
  - HALLUCINATION, VISUAL [None]
